FAERS Safety Report 19001514 (Version 1)
Quarter: 2021Q1

REPORT INFORMATION
  Report Type: Spontaneous
  Country: US (occurrence: US)
  Receive Date: 20210312
  Receipt Date: 20210312
  Transmission Date: 20210420
  Serious: No
  Sender: FDA-Public Use
  Company Number: US-FARMAPROD-202009-1258

PATIENT
  Sex: Male
  Weight: 77.18 kg

DRUGS (13)
  1. OFLOXACIN. [Concomitant]
     Active Substance: OFLOXACIN
  2. LOTEMAX [Concomitant]
     Active Substance: LOTEPREDNOL ETABONATE
  3. DELZICOL [Concomitant]
     Active Substance: MESALAMINE
  4. WARFARIN SODIUM. [Concomitant]
     Active Substance: WARFARIN SODIUM
  5. RAMIPRIL. [Concomitant]
     Active Substance: RAMIPRIL
  6. OXERVATE [Suspect]
     Active Substance: CENEGERMIN-BKBJ
     Indication: HYPOAESTHESIA EYE
     Route: 047
     Dates: start: 20200821
  7. OXERVATE [Suspect]
     Active Substance: CENEGERMIN-BKBJ
     Indication: NEUROTROPHIC KERATOPATHY
  8. PLAVIX [Concomitant]
     Active Substance: CLOPIDOGREL BISULFATE
  9. DILTIAZEM. [Concomitant]
     Active Substance: DILTIAZEM
  10. OMEPRAZOLE AND SODIUM BICARBONATE [Concomitant]
     Active Substance: OMEPRAZOLE\SODIUM BICARBONATE
  11. OXERVATE [Suspect]
     Active Substance: CENEGERMIN-BKBJ
     Indication: ULCERATIVE KERATITIS
  12. LOTEPREDNOL ETABONATE [Concomitant]
     Active Substance: LOTEPREDNOL ETABONATE
  13. ATORVASTATIN CALCIUM. [Concomitant]
     Active Substance: ATORVASTATIN CALCIUM

REACTIONS (4)
  - Headache [Unknown]
  - Eye pain [Unknown]
  - Photophobia [Unknown]
  - Drug ineffective [Unknown]
